FAERS Safety Report 4362414-8 (Version None)
Quarter: 2004Q2

REPORT INFORMATION
  Report Type: 
  Country: None (occurrence: None)
  Receive Date: 20040521
  Receipt Date: 20040422
  Transmission Date: 20050107
  Serious: Yes (Other)
  Sender: FDA-Public Use
  Company Number: JP-JNJFOC-20040504584

PATIENT
  Sex: Female

DRUGS (4)
  1. ITRIZOLE [Suspect]
     Indication: ONYCHOMYCOSIS
     Route: 049
  2. ITRIZOLE [Suspect]
     Indication: TINEA PEDIS
     Route: 049
  3. TERBINAFINE HCL [Concomitant]
     Indication: TINEA PEDIS
     Route: 061
  4. TERBINAFINE HCL [Concomitant]
     Indication: NAIL TINEA
     Route: 061

REACTIONS (1)
  - ERYTHEMA MULTIFORME [None]
